FAERS Safety Report 7954961-4 (Version None)
Quarter: 2011Q4

REPORT INFORMATION
  Report Type: 
  Country: None (occurrence: None)
  Receive Date: 20111202
  Receipt Date: 20111124
  Transmission Date: 20120403
  Serious: Yes (Death, Life-Threatening, Hospitalization, Other)
  Sender: FDA-Public Use
  Company Number: JP-AMGEN-JPNCT2011037628

PATIENT
  Age: 70 Year
  Sex: Male
  Weight: 58 kg

DRUGS (8)
  1. PANITUMUMAB [Suspect]
     Dosage: 6 MG/KG, Q2WK
     Route: 041
     Dates: start: 20110114, end: 20110128
  2. FLUOROURACIL [Suspect]
     Indication: COLORECTAL CANCER
     Route: 040
     Dates: start: 20110407, end: 20110409
  3. LEVOLEUCOVORIN CALCIUM [Suspect]
     Indication: COLORECTAL CANCER
     Route: 041
     Dates: start: 20110407, end: 20110409
  4. PANITUMUMAB [Suspect]
     Dosage: 6 MG/KG, Q2WK
     Route: 041
     Dates: start: 20110407, end: 20110407
  5. IRINOTECAN HCL [Suspect]
     Indication: COLORECTAL CANCER
     Dosage: 150 MG/M2, Q2WK
     Route: 041
     Dates: start: 20110407, end: 20110409
  6. FLUOROURACIL [Suspect]
     Route: 041
     Dates: start: 20110407, end: 20110409
  7. PANITUMUMAB [Suspect]
     Indication: COLORECTAL CANCER
     Dosage: 6 MG/KG, Q2WK
     Route: 041
     Dates: start: 20101001, end: 20101210
  8. PANITUMUMAB [Suspect]
     Dosage: 6 MG/KG, Q2WK
     Route: 041
     Dates: start: 20110512, end: 20110623

REACTIONS (8)
  - METASTASES TO CENTRAL NERVOUS SYSTEM [None]
  - HEPATIC FUNCTION ABNORMAL [None]
  - COLORECTAL CANCER [None]
  - ALTERED STATE OF CONSCIOUSNESS [None]
  - HYPERAMMONAEMIA [None]
  - PNEUMONIA [None]
  - DERMATITIS ACNEIFORM [None]
  - GRANULOCYTOPENIA [None]
